FAERS Safety Report 12229356 (Version 3)
Quarter: 2016Q3

REPORT INFORMATION
  Report Type: Spontaneous
  Country: US (occurrence: US)
  Receive Date: 20160401
  Receipt Date: 20160804
  Transmission Date: 20161109
  Serious: Yes (Hospitalization)
  Sender: FDA-Public Use
  Company Number: US-JNJFOC-20160302618

PATIENT
  Age: 48 Year
  Sex: Female

DRUGS (2)
  1. XARELTO [Suspect]
     Active Substance: RIVAROXABAN
     Indication: PULMONARY EMBOLISM
     Route: 048
     Dates: start: 20150111, end: 20150201
  2. XARELTO [Suspect]
     Active Substance: RIVAROXABAN
     Indication: PULMONARY EMBOLISM
     Route: 048
     Dates: start: 20150103, end: 20150118

REACTIONS (5)
  - Subarachnoid haemorrhage [Recovering/Resolving]
  - Lower gastrointestinal haemorrhage [Recovering/Resolving]
  - Fall [Recovered/Resolved]
  - Colitis ischaemic [Recovering/Resolving]
  - Hypovolaemic shock [Recovered/Resolved]

NARRATIVE: CASE EVENT DATE: 2015
